FAERS Safety Report 19636819 (Version 10)
Quarter: 2021Q4

REPORT INFORMATION
  Report Type: Report from Study
  Country: GB (occurrence: GB)
  Receive Date: 20210730
  Receipt Date: 20211014
  Transmission Date: 20220303
  Serious: Yes (Death, Hospitalization, Other)
  Sender: FDA-Public Use
  Company Number: None

PATIENT
  Age: 55 Year
  Sex: Female

DRUGS (38)
  1. CAPECITABINE [Suspect]
     Active Substance: CAPECITABINE
     Indication: Breast cancer
     Route: 048
     Dates: start: 20201020
  2. DOCETAXEL [Suspect]
     Active Substance: DOCETAXEL
     Indication: Breast cancer
     Route: 042
     Dates: start: 20170525, end: 20170525
  3. PACLITAXEL [Suspect]
     Active Substance: PACLITAXEL
     Indication: Breast cancer
     Dosage: 300 MILLIGRAM; NAB PACLITAXEL
     Route: 042
     Dates: start: 20170816, end: 20170906
  4. NERATINIB [Suspect]
     Active Substance: NERATINIB
     Indication: Breast cancer
     Dosage: ONCE DAILY ORAL
     Route: 048
     Dates: start: 20200919, end: 20201104
  5. TRASTUZUMAB [Suspect]
     Active Substance: TRASTUZUMAB
     Indication: Breast cancer
     Route: 042
     Dates: start: 20180516, end: 20190327
  6. PERTUZUMAB [Suspect]
     Active Substance: PERTUZUMAB
     Indication: Breast cancer
     Route: 042
     Dates: start: 20170614, end: 20190327
  7. ERIBULIN [Suspect]
     Active Substance: ERIBULIN
     Indication: Breast cancer
     Route: 042
     Dates: start: 20200611, end: 20200820
  8. ADO-TRASTUZUMAB EMTANSINE [Suspect]
     Active Substance: ADO-TRASTUZUMAB EMTANSINE
     Indication: Product used for unknown indication
     Route: 042
     Dates: start: 20190627, end: 20190718
  9. SANDO-K [Concomitant]
     Indication: Product used for unknown indication
     Route: 048
     Dates: start: 20170525, end: 20170529
  10. TEICOPLANIN [Concomitant]
     Active Substance: TEICOPLANIN
     Indication: Biliary sepsis
     Route: 042
     Dates: start: 20200502, end: 20200515
  11. TINZAPARIN [Concomitant]
     Active Substance: TINZAPARIN
     Route: 058
     Dates: start: 20170713, end: 20190723
  12. TRANEXAMIC ACID [Concomitant]
     Active Substance: TRANEXAMIC ACID
     Indication: Duodenal ulcer
     Route: 065
     Dates: start: 20190722, end: 201907
  13. VANCOMYCIN [Concomitant]
     Active Substance: VANCOMYCIN
     Route: 048
     Dates: start: 20201104, end: 20201113
  14. ZOLEDRONIC ACID [Concomitant]
     Active Substance: ZOLEDRONIC ACID
     Route: 042
     Dates: start: 20170525, end: 20201022
  15. AMITRIPTYLINE [Concomitant]
     Active Substance: AMITRIPTYLINE
     Indication: Depressed mood
     Route: 048
     Dates: start: 20190827, end: 20190919
  16. AZTREONAM [Concomitant]
     Active Substance: AZTREONAM
     Indication: Product contamination microbial
     Route: 042
     Dates: start: 20201028, end: 20201104
  17. CALCIUM\CHOLECALCIFEROL [Concomitant]
     Active Substance: CALCIUM\CHOLECALCIFEROL
     Indication: Product used for unknown indication
     Route: 048
     Dates: start: 20170525, end: 20210205
  18. CEFUROXIME [Concomitant]
     Active Substance: CEFUROXIME
     Indication: Product contamination microbial
     Route: 048
     Dates: start: 20201028
  19. CETIRIZINE [Concomitant]
     Active Substance: CETIRIZINE HYDROCHLORIDE
     Indication: Urticaria papular
     Route: 048
     Dates: start: 20190313, end: 2019
  20. CHLORHEXIDINE GLUCONATE [Concomitant]
     Active Substance: CHLORHEXIDINE GLUCONATE
     Route: 061
     Dates: start: 20170525, end: 2017
  21. CHLORPHENIRAMINE MALEATE [Concomitant]
     Active Substance: CHLORPHENIRAMINE MALEATE
     Route: 048
     Dates: start: 20170526, end: 20170530
  22. CIPROFLOXACIN [Concomitant]
     Active Substance: CIPROFLOXACIN
     Indication: Abdominal pain upper
     Route: 065
     Dates: start: 20200707, end: 20200707
  23. CLOBETASOL PROPIONATE [Concomitant]
     Active Substance: CLOBETASOL PROPIONATE
     Route: 061
     Dates: start: 20170210, end: 201708
  24. CEFTRIAXONE [Concomitant]
     Active Substance: CEFTRIAXONE
     Indication: Product contamination microbial
     Route: 048
     Dates: start: 20200928, end: 20201012
  25. CLOBETASOL [Concomitant]
     Active Substance: CLOBETASOL
     Indication: Product used for unknown indication
     Dosage: 0.5 %
     Route: 061
  26. DOMPERIDONE [Concomitant]
     Active Substance: DOMPERIDONE
     Route: 048
     Dates: start: 20170523, end: 20170526
  27. FUSIDIC ACID [Concomitant]
     Active Substance: FUSIDIC ACID
     Indication: Rhinitis
     Route: 065
     Dates: start: 201905, end: 201905
  28. CYCLOSPORINE [Concomitant]
     Active Substance: CYCLOSPORINE
     Indication: Blepharitis
     Route: 047
     Dates: start: 201708, end: 2018
  29. LANSOPRAZOLE [Concomitant]
     Active Substance: LANSOPRAZOLE
     Indication: Gastritis
     Route: 048
     Dates: start: 20190730, end: 202010
  30. LOPERAMIDE [Concomitant]
     Active Substance: LOPERAMIDE
     Route: 048
     Dates: start: 20170613, end: 20201113
  31. METRONIDAZOLE [Concomitant]
     Active Substance: METRONIDAZOLE
     Indication: Duodenal ulcer
     Route: 065
     Dates: start: 20200909, end: 20200914
  32. ACETAMINOPHEN [Concomitant]
     Active Substance: ACETAMINOPHEN
     Route: 048
     Dates: start: 20170525, end: 20210205
  33. Artificial Saliva [Concomitant]
     Dosage: 1 SPRAY
     Route: 060
     Dates: start: 20170526, end: 2017
  34. XELODA [Suspect]
     Active Substance: CAPECITABINE
     Indication: Breast cancer
     Dosage: 1300 MILLIGRAM
     Route: 048
     Dates: start: 20181020
  35. CALCIUM CARBONATE [Concomitant]
     Active Substance: CALCIUM CARBONATE
     Indication: Product used for unknown indication
     Route: 065
  36. CHOLECALCIFEROL [Concomitant]
     Active Substance: CHOLECALCIFEROL
     Indication: Product contamination microbial
     Dosage: 250 MILLIGRAM BID
     Route: 048
     Dates: start: 20200928, end: 20201012
  37. DOCETAXEL [Concomitant]
     Active Substance: DOCETAXEL
     Indication: Depressed mood
     Dosage: 5 MILLIGRAM
     Route: 048
     Dates: start: 20190827, end: 20190919
  38. POTASSIUM CHLORIDE [Concomitant]
     Active Substance: POTASSIUM CHLORIDE
     Indication: Product used for unknown indication
     Route: 065

REACTIONS (4)
  - Pyrexia [Recovered/Resolved]
  - Abdominal pain [Recovered/Resolved]
  - Breast cancer [Fatal]
  - Disease progression [Fatal]

NARRATIVE: CASE EVENT DATE: 20200724
